FAERS Safety Report 19441760 (Version 2)
Quarter: 2021Q2

REPORT INFORMATION
  Report Type: Other
  Country: RU (occurrence: RU)
  Receive Date: 20210621
  Receipt Date: 20210629
  Transmission Date: 20210717
  Serious: Yes (Other)
  Sender: FDA-Public Use
  Company Number: RU-MACLEODS PHARMACEUTICALS US LTD-MAC2021031541

PATIENT

DRUGS (4)
  1. TENOFOVIR 300MG [Suspect]
     Active Substance: TENOFOVIR DISOPROXIL
     Indication: HIV INFECTION
     Dosage: 300 MILLIGRAM, QD, TENOFOVIR DISOPROXIL FUMARATE, ONE COURSE, EARLIEST EXPOSURE: FIRST TRIMESTER
     Route: 048
     Dates: start: 20201123
  2. LOPINAVIR/RITONAVIR [Suspect]
     Active Substance: LOPINAVIR\RITONAVIR
     Indication: HIV INFECTION
     Dosage: 250 MILLIGRAM, QD, ONE COURSE, EARLIEST EXPOSURE: FIRST TRIMESTER
     Route: 048
     Dates: start: 20201123
  3. LAMIVUDINE. [Suspect]
     Active Substance: LAMIVUDINE
     Indication: HIV INFECTION
     Dosage: 300 MILLIGRAM, QD, ONE COURSE, EARLIEST EXPOSURE: FIRST TRIMESTER
     Route: 048
     Dates: start: 20201101
  4. TIVICAY [Suspect]
     Active Substance: DOLUTEGRAVIR SODIUM
     Indication: HIV INFECTION
     Dosage: 50 MILLIGRAM, QD, ONE COURSE, FIRST TRIMESTER
     Route: 048
     Dates: start: 20201101, end: 20201122

REACTIONS (2)
  - Abortion spontaneous [Unknown]
  - Maternal exposure during pregnancy [Unknown]

NARRATIVE: CASE EVENT DATE: 20201231
